FAERS Safety Report 7128699-X (Version None)
Quarter: 2010Q4

REPORT INFORMATION
  Report Type: 
  Country: None (occurrence: None)
  Receive Date: 20101112
  Receipt Date: 20101028
  Transmission Date: 20110411
  Serious: Yes (Death)
  Sender: FDA-Public Use
  Company Number: 2010P1002283

PATIENT
  Age: 88 Year
  Sex: Female

DRUGS (3)
  1. FENTANYL [Suspect]
     Dates: end: 20080101
  2. CON MEDS [Concomitant]
  3. PREV MEDS [Concomitant]

REACTIONS (1)
  - DIET REFUSAL [None]
